FAERS Safety Report 17257541 (Version 5)
Quarter: 2022Q1

REPORT INFORMATION
  Report Type: Spontaneous
  Country: US (occurrence: US)
  Receive Date: 20200110
  Receipt Date: 20220331
  Transmission Date: 20220423
  Serious: No
  Sender: FDA-Public Use
  Company Number: US-PFIZER INC-2020007680

PATIENT
  Age: 61 Year
  Sex: Female
  Weight: 78.458 kg

DRUGS (1)
  1. DILANTIN [Suspect]
     Active Substance: PHENYTOIN
     Indication: Seizure
     Dosage: 50 MG, DAILY
     Route: 048

REACTIONS (3)
  - Thyroid function test abnormal [Unknown]
  - Anticonvulsant drug level abnormal [Unknown]
  - Incorrect dosage administered [Unknown]
